FAERS Safety Report 25617653 (Version 1)
Quarter: 2025Q3

REPORT INFORMATION
  Report Type: Spontaneous
  Country: US (occurrence: None)
  Receive Date: 20250729
  Receipt Date: 20250729
  Transmission Date: 20251020
  Serious: Yes (Other)
  Sender: FDA-CTU
  Company Number: None

PATIENT
  Age: 74 Year
  Sex: Female
  Weight: 108.9 kg

DRUGS (3)
  1. ZUNVEYL [Suspect]
     Active Substance: GALANTAMINE BENZOATE
     Indication: Dementia Alzheimer^s type
     Dosage: FREQUENCY : TWICE A DAY;?
     Route: 048
     Dates: start: 20250601
  2. Zunveyl 5mg BID [Concomitant]
     Dates: start: 20250603, end: 20250624
  3. Zunveyl 10mg BID [Concomitant]
     Dates: start: 20250625

REACTIONS (6)
  - Aggression [None]
  - Aggression [None]
  - Echopraxia [None]
  - Refusal of treatment by patient [None]
  - Physical assault [None]
  - Poor quality sleep [None]

NARRATIVE: CASE EVENT DATE: 20250701
